FAERS Safety Report 22055749 (Version 1)
Quarter: 2023Q1

REPORT INFORMATION
  Report Type: Spontaneous
  Country: US (occurrence: US)
  Receive Date: 20230302
  Receipt Date: 20230302
  Transmission Date: 20230417
  Serious: Yes (Hospitalization)
  Sender: FDA-Public Use
  Company Number: US-G1 THERAPEUTICS-2023G1US0000043

PATIENT

DRUGS (4)
  1. COSELA [Suspect]
     Active Substance: TRILACICLIB DIHYDROCHLORIDE
     Indication: Small cell lung cancer
     Dosage: 576 MG EVERY 21 DAYS
     Route: 042
     Dates: end: 20230111
  2. ETOPOSIDE [Concomitant]
     Active Substance: ETOPOSIDE
     Indication: Product used for unknown indication
     Route: 065
  3. CARBOPLATIN [Concomitant]
     Active Substance: CARBOPLATIN
     Indication: Product used for unknown indication
     Route: 065
  4. IMFINZI [Concomitant]
     Active Substance: DURVALUMAB
     Indication: Product used for unknown indication
     Route: 065

REACTIONS (4)
  - Dyspnoea [Unknown]
  - Oxygen saturation decreased [Unknown]
  - Liver function test abnormal [Unknown]
  - Diplopia [Unknown]

NARRATIVE: CASE EVENT DATE: 20230201
